FAERS Safety Report 15939360 (Version 1)
Quarter: 2019Q1

REPORT INFORMATION
  Report Type: Spontaneous
  Country: IN (occurrence: IN)
  Receive Date: 20190208
  Receipt Date: 20190208
  Transmission Date: 20190417
  Serious: Yes (Hospitalization)
  Sender: FDA-Public Use
  Company Number: IN-FRESENIUS KABI-FK201901391

PATIENT
  Age: 4 Year
  Sex: Female

DRUGS (2)
  1. ETHIODIZED OIL [Suspect]
     Active Substance: ETHIODIZED OIL
     Indication: VASCULAR MALFORMATION
     Route: 065
  2. BLEOMYCIN [Suspect]
     Active Substance: BLEOMYCIN SULFATE
     Indication: VASCULAR MALFORMATION
     Route: 065

REACTIONS (1)
  - Interstitial lung disease [Unknown]
